FAERS Safety Report 6208141-3 (Version None)
Quarter: 2009Q2

REPORT INFORMATION
  Report Type: 
  Country: None (occurrence: None)
  Receive Date: 20090529
  Receipt Date: 20090518
  Transmission Date: 20091009
  Serious: Yes (Hospitalization, Other)
  Sender: FDA-Public Use
  Company Number: US-ROCHE-634616

PATIENT
  Age: 69 Year
  Sex: Female

DRUGS (2)
  1. KLONOPIN [Suspect]
     Indication: DRUG USE FOR UNKNOWN INDICATION
     Route: 065
     Dates: start: 19800101
  2. KLONOPIN [Suspect]
     Route: 065
     Dates: start: 19970401

REACTIONS (4)
  - CONVULSION [None]
  - DRUG DOSE OMISSION [None]
  - HOSPITALISATION [None]
  - LABORATORY TEST ABNORMAL [None]
